FAERS Safety Report 24880764 (Version 1)
Quarter: 2025Q1

REPORT INFORMATION
  Report Type: Spontaneous
  Country: JP (occurrence: JP)
  Receive Date: 20250123
  Receipt Date: 20250123
  Transmission Date: 20250409
  Serious: Yes (Life-Threatening, Other)
  Sender: TAKEDA
  Company Number: JP-TAKEDA-2025TJP000697

PATIENT
  Age: 3 Year
  Sex: Male

DRUGS (1)
  1. KENKETU GLOVENIN-I [Suspect]
     Active Substance: HUMAN IMMUNOGLOBULIN G
     Indication: Kawasaki^s disease

REACTIONS (2)
  - Anaphylactic reaction [Unknown]
  - Blood pressure increased [Unknown]
